FAERS Safety Report 10917629 (Version 1)
Quarter: 2015Q1

REPORT INFORMATION
  Report Type: Spontaneous
  Country: US (occurrence: None)
  Receive Date: 20150312
  Receipt Date: 20150312
  Transmission Date: 20150721
  Serious: No
  Sender: FDA-Public Use
  Company Number: None

PATIENT
  Age: 76 Year
  Sex: Male
  Weight: 83.01 kg

DRUGS (10)
  1. FLUOXETINE HYDROCHLORIDE. [Suspect]
     Active Substance: FLUOXETINE HYDROCHLORIDE
     Indication: DEPRESSION
     Dosage: AT BEDTIME, BY MOUTH, 30 PILLS.
     Route: 048
     Dates: start: 20150117, end: 20150220
  2. LAMOTRIGINE. [Concomitant]
     Active Substance: LAMOTRIGINE
  3. ZYPREXA [Concomitant]
     Active Substance: OLANZAPINE
  4. BUPROPION [Concomitant]
     Active Substance: BUPROPION
  5. BENAZEPRIL HCL [Concomitant]
     Active Substance: BENAZEPRIL HYDROCHLORIDE
  6. MEN^S HEALTH FORMULA 1 DAY/MULTIVITAMINS [Concomitant]
  7. VIT. C [Concomitant]
  8. LITHIUM CARBONATE. [Concomitant]
     Active Substance: LITHIUM CARBONATE
  9. MEGA RED [Concomitant]
  10. FLUOXETINE HYDROCHLORIDE. [Suspect]
     Active Substance: FLUOXETINE HYDROCHLORIDE
     Indication: BIPOLAR DISORDER
     Dosage: AT BEDTIME, BY MOUTH, 30 PILLS.
     Route: 048
     Dates: start: 20150117, end: 20150220

REACTIONS (4)
  - Product substitution issue [None]
  - Product quality issue [None]
  - Therapy cessation [None]
  - Night sweats [None]

NARRATIVE: CASE EVENT DATE: 20150124
